FAERS Safety Report 8505207-X (Version None)
Quarter: 2012Q3

REPORT INFORMATION
  Report Type: 
  Country: None (occurrence: None)
  Receive Date: 20120712
  Receipt Date: 20120705
  Transmission Date: 20120928
  Serious: Yes (Hospitalization)
  Sender: FDA-Public Use
  Company Number: US-US-EMD SERONO, INC.-7106104

PATIENT
  Sex: Female

DRUGS (5)
  1. REQUIP [Concomitant]
  2. REBIF [Suspect]
     Indication: MULTIPLE SCLEROSIS
     Route: 058
     Dates: start: 20110302, end: 20110801
  3. GABAPENTIN [Concomitant]
  4. M.V.I. [Concomitant]
  5. HIGH BLOOD PRESSURE MEDICATION [Concomitant]

REACTIONS (8)
  - ROAD TRAFFIC ACCIDENT [None]
  - UPPER LIMB FRACTURE [None]
  - TRAUMATIC LUNG INJURY [None]
  - LIMB CRUSHING INJURY [None]
  - THERMAL BURN [None]
  - OEDEMA PERIPHERAL [None]
  - RIB FRACTURE [None]
  - HEART INJURY [None]
